FAERS Safety Report 8978735 (Version 1)
Quarter: 2012Q4

REPORT INFORMATION
  Report Type: 
  Country: HK (occurrence: HK)
  Receive Date: 20121220
  Receipt Date: 20121220
  Transmission Date: 20130627
  Serious: Yes (Other)
  Sender: FDA-Public Use
  Company Number: HK-GILEAD-2012-0066539

PATIENT
  Sex: Male

DRUGS (2)
  1. TENOFOVIR DISOPROXIL FUMARATE [Suspect]
     Indication: PRODUCT USED FOR UNKNOWN INDICATION
  2. HEPSERA [Suspect]
     Indication: PRODUCT USED FOR UNKNOWN INDICATION

REACTIONS (3)
  - Hepatocellular carcinoma [Unknown]
  - Pathological fracture [Unknown]
  - Hypophosphataemia [Unknown]
